FAERS Safety Report 4815079-2 (Version None)
Quarter: 2005Q4

REPORT INFORMATION
  Report Type: 
  Country: None (occurrence: None)
  Receive Date: 20051027
  Receipt Date: 20051018
  Transmission Date: 20060501
  Serious: Yes (Other)
  Sender: FDA-Public Use
  Company Number: 2005144114

PATIENT
  Age: 32 Year
  Sex: Female
  Weight: 79.3795 kg

DRUGS (2)
  1. DEPO-PROVERA [Suspect]
     Indication: MENORRHAGIA
     Dosage: FIRST INJECTION, EVERY 3 MONTHS, INTRAMUSCULAR; LAST INJECTION, INTRAMUSCULAR
     Route: 030
     Dates: start: 20001201, end: 20001201
  2. DEPO-PROVERA [Suspect]
     Indication: MENORRHAGIA
     Dosage: FIRST INJECTION, EVERY 3 MONTHS, INTRAMUSCULAR; LAST INJECTION, INTRAMUSCULAR
     Route: 030
     Dates: start: 20050816, end: 20050816

REACTIONS (5)
  - BLOOD CHOLESTEROL ABNORMAL [None]
  - BLOOD PRESSURE ABNORMAL [None]
  - BREAST CANCER [None]
  - CARDIAC DISORDER [None]
  - THYROID DISORDER [None]
